FAERS Safety Report 9748945 (Version 2)
Quarter: 2013Q4

REPORT INFORMATION
  Report Type: Spontaneous
  Country: US (occurrence: US)
  Receive Date: 20131212
  Receipt Date: 20131212
  Transmission Date: 20140711
  Serious: No
  Sender: FDA-Public Use
  Company Number: US-INCYTE CORPORATION-2013IN000632

PATIENT
  Age: 65 Year
  Sex: Female

DRUGS (6)
  1. JAKAFI [Suspect]
     Indication: MYELOFIBROSIS
     Dosage: 20 MG, BID
     Route: 048
     Dates: start: 20120626
  2. PREDNISONE [Concomitant]
  3. ASPIRIN [Concomitant]
     Dosage: 81 MG
     Route: 048
  4. OMEPRAZOLE [Concomitant]
     Dosage: 20 MG
  5. HYDROXYUREA [Concomitant]
     Dosage: 500 MG
  6. CALCIUM + VITAMIN D TABLET [Concomitant]
     Route: 048

REACTIONS (5)
  - Platelet count increased [Unknown]
  - Nasopharyngitis [Unknown]
  - Gastritis [Unknown]
  - Oesophagitis [Unknown]
  - White blood cell count increased [Unknown]
